FAERS Safety Report 9624301 (Version 1)
Quarter: 2013Q4

REPORT INFORMATION
  Report Type: Spontaneous
  Country: US (occurrence: US)
  Receive Date: 20131015
  Receipt Date: 20131015
  Transmission Date: 20140711
  Serious: Yes (Hospitalization, Other)
  Sender: FDA-Public Use
  Company Number: US-ELI_LILLY_AND_COMPANY-US201310002794

PATIENT
  Sex: Female

DRUGS (1)
  1. HUMALOG LISPRO [Suspect]
     Indication: DIABETES MELLITUS
     Dosage: UNK
     Route: 058

REACTIONS (4)
  - Heart rate decreased [Recovered/Resolved]
  - Dizziness [Recovered/Resolved]
  - Drug ineffective [Recovered/Resolved]
  - Incorrect dose administered [Unknown]
